FAERS Safety Report 11881212 (Version 3)
Quarter: 2016Q1

REPORT INFORMATION
  Report Type: Spontaneous
  Country: US (occurrence: US)
  Receive Date: 20151231
  Receipt Date: 20160121
  Transmission Date: 20160526
  Serious: Yes (Death)
  Sender: FDA-Public Use
  Company Number: US-009507513-1512USA013734

PATIENT
  Age: 72 Year
  Sex: Male

DRUGS (4)
  1. EMEND [Suspect]
     Active Substance: APREPITANT
     Indication: NAUSEA
     Dosage: 125 MG ONCE, EVERY 21 DAYS
     Route: 048
     Dates: start: 201510, end: 201510
  2. EMEND [Suspect]
     Active Substance: APREPITANT
     Dosage: 80 MG, DAY 2, EVERY 21 DAYS
     Route: 048
     Dates: start: 201510, end: 201510
  3. EMEND [Suspect]
     Active Substance: APREPITANT
     Dosage: 80 MG, DAY 3, EVERY 21 DAYS
     Route: 048
     Dates: start: 201510, end: 201510
  4. NEULASTA [Concomitant]
     Active Substance: PEGFILGRASTIM
     Indication: WHITE BLOOD CELL COUNT DECREASED

REACTIONS (1)
  - Death [Fatal]

NARRATIVE: CASE EVENT DATE: 20151222
